FAERS Safety Report 20380842 (Version 1)
Quarter: 2022Q1

REPORT INFORMATION
  Report Type: Spontaneous
  Country: AU (occurrence: AU)
  Receive Date: 20220127
  Receipt Date: 20220127
  Transmission Date: 20220424
  Serious: Yes (Other)
  Sender: FDA-Public Use
  Company Number: AU-ALKEM LABORATORIES LIMITED-AU-ALKEM-2022-00205

PATIENT
  Age: 72 Year
  Sex: Male

DRUGS (3)
  1. MYCOPHENOLATE MOFETIL [Suspect]
     Active Substance: MYCOPHENOLATE MOFETIL
     Indication: Product used for unknown indication
     Dosage: UNK
     Route: 065
  2. TACROLIMUS [Suspect]
     Active Substance: TACROLIMUS
     Indication: Product used for unknown indication
     Dosage: UNK
     Route: 065
  3. METHYLPREDNISOLONE [Suspect]
     Active Substance: METHYLPREDNISOLONE
     Indication: Product used for unknown indication
     Dosage: UNK
     Route: 065

REACTIONS (16)
  - Embolism [Unknown]
  - Aspergillus infection [Unknown]
  - Bacterial colitis [Unknown]
  - Enterococcal infection [Unknown]
  - Escherichia bacteraemia [Unknown]
  - Escherichia sepsis [Unknown]
  - Infarction [Unknown]
  - Leukopenia [Unknown]
  - Neutropenic sepsis [Unknown]
  - Pseudomonas infection [Unknown]
  - Septic shock [Unknown]
  - Respiratory failure [Unknown]
  - Shock [Unknown]
  - Malacoplakia gastrointestinal [Unknown]
  - Multi-organ disorder [Unknown]
  - Pseudopolyposis [Unknown]
